FAERS Safety Report 16113429 (Version 2)
Quarter: 2019Q2

REPORT INFORMATION
  Report Type: Spontaneous
  Country: US (occurrence: US)
  Receive Date: 20190325
  Receipt Date: 20190503
  Transmission Date: 20190711
  Serious: No
  Sender: FDA-Public Use
  Company Number: US-PFIZER INC-2019123421

PATIENT
  Age: 63 Year
  Sex: Female

DRUGS (1)
  1. METHOTREXATE SODIUM. [Suspect]
     Active Substance: METHOTREXATE SODIUM
     Dosage: UNK
     Dates: start: 201702

REACTIONS (6)
  - Treatment failure [Unknown]
  - Abdominal discomfort [Unknown]
  - Mucosal inflammation [Unknown]
  - Skin lesion [Unknown]
  - Diarrhoea [Unknown]
  - Mucosal ulceration [Unknown]
